FAERS Safety Report 16028908 (Version 1)
Quarter: 2019Q1

REPORT INFORMATION
  Report Type: Spontaneous
  Country: US (occurrence: US)
  Receive Date: 20190304
  Receipt Date: 20190304
  Transmission Date: 20190418
  Serious: No
  Sender: FDA-Public Use
  Company Number: US-IMPAX LABORATORIES, LLC-2018-IPXL-01177

PATIENT
  Age: 88 Year
  Sex: Female
  Weight: 71 kg

DRUGS (2)
  1. RYTARY [Suspect]
     Active Substance: CARBIDOPA\LEVODOPA
     Indication: PRODUCT USED FOR UNKNOWN INDICATION
     Dosage: 23.75/ 95 MG, TWO CAPSULES 3 TIMES A DAY
     Route: 048
     Dates: start: 201803, end: 201803
  2. RYTARY [Suspect]
     Active Substance: CARBIDOPA\LEVODOPA
     Dosage: 23.75/95 MG, THREE CAPSULES 3 TIMES A DAY (AT 06:00AM, 11:00 AM, AND 04:00 PM)
     Route: 048
     Dates: start: 201803

REACTIONS (1)
  - Skin laceration [Recovering/Resolving]
